FAERS Safety Report 8064376-9 (Version None)
Quarter: 2012Q1

REPORT INFORMATION
  Report Type: 
  Country: None (occurrence: None)
  Receive Date: 20120123
  Receipt Date: 20120110
  Transmission Date: 20120608
  Serious: Yes (Hospitalization)
  Sender: FDA-Public Use
  Company Number: DE-NAPPMUNDI-DEU-2011-0007540

PATIENT
  Age: 68 Year
  Sex: Male

DRUGS (4)
  1. ANALGESICS [Concomitant]
     Indication: PAIN
  2. HYDROMORPHONE HYDROCHLORIDE [Suspect]
     Indication: PAIN
     Dosage: 2.6 MG, PRN
     Route: 048
     Dates: start: 20101001
  3. TRICYCLIC ANTIDEPRESSANTS [Concomitant]
  4. HYDROMORPHONE HCL [Suspect]
     Indication: PAIN
     Dosage: 64 MG, UNK

REACTIONS (2)
  - HYPERTENSIVE CRISIS [None]
  - HYPERTENSION [None]
